FAERS Safety Report 14295474 (Version 7)
Quarter: 2022Q1

REPORT INFORMATION
  Report Type: Spontaneous
  Country: US (occurrence: US)
  Receive Date: 20171218
  Receipt Date: 20220201
  Transmission Date: 20220423
  Serious: Yes (Other)
  Sender: FDA-Public Use
  Company Number: US-PFIZER INC-2017391501

PATIENT
  Age: 57 Year
  Sex: Male
  Weight: 97.052 kg

DRUGS (4)
  1. XELJANZ XR [Suspect]
     Active Substance: TOFACITINIB CITRATE
     Indication: Rheumatoid arthritis
     Dosage: 11 MG, DAILY
     Route: 048
     Dates: start: 201702
  2. XELJANZ XR [Suspect]
     Active Substance: TOFACITINIB CITRATE
     Dosage: 11 MG DAILY
     Route: 048
     Dates: start: 2018
  3. METHOTREXATE [Concomitant]
     Active Substance: METHOTREXATE
     Dosage: UNK
  4. COVID-19 VACCINE [Concomitant]
     Dosage: UNK

REACTIONS (11)
  - Deep vein thrombosis [Unknown]
  - Therapeutic product effect incomplete [Unknown]
  - Latent tuberculosis [Not Recovered/Not Resolved]
  - Malaise [Unknown]
  - Sensitivity to weather change [Unknown]
  - Anxiety [Unknown]
  - Post procedural swelling [Recovering/Resolving]
  - Procedural pain [Recovering/Resolving]
  - Arthritis [Unknown]
  - COVID-19 [Recovered/Resolved]
  - Feeling abnormal [Unknown]

NARRATIVE: CASE EVENT DATE: 20180101
